FAERS Safety Report 4823614-3 (Version None)
Quarter: 2005Q4

REPORT INFORMATION
  Report Type: 
  Country: None (occurrence: None)
  Receive Date: 20051107
  Receipt Date: 20051024
  Transmission Date: 20060501
  Serious: Yes (Other)
  Sender: FDA-Public Use
  Company Number: 218867

PATIENT
  Age: 78 Year
  Sex: Male
  Weight: 94.3 kg

DRUGS (1)
  1. AVASTIN [Suspect]
     Indication: COLORECTAL CANCER METASTATIC
     Dosage: 4 MG/KG, Q2W, INTRAVENOUS
     Route: 042
     Dates: start: 20050405, end: 20051018

REACTIONS (8)
  - BACTERIAL INFECTION [None]
  - FALL [None]
  - FEMORAL NECK FRACTURE [None]
  - HIP FRACTURE [None]
  - NOSOCOMIAL INFECTION [None]
  - POSTOPERATIVE WOUND INFECTION [None]
  - STAPHYLOCOCCAL INFECTION [None]
  - WOUND SECRETION [None]
